FAERS Safety Report 9293308 (Version 2)
Quarter: 2013Q2

REPORT INFORMATION
  Report Type: Spontaneous
  Country: US (occurrence: US)
  Receive Date: 20130516
  Receipt Date: 20130610
  Transmission Date: 20140414
  Serious: Yes (Other)
  Sender: FDA-Public Use
  Company Number: US-JNJFOC-20130408985

PATIENT
  Age: 26 Year
  Sex: Female
  Weight: 67.13 kg

DRUGS (3)
  1. DURAGESIC [Suspect]
     Indication: ENDOMETRIOSIS
     Route: 062
     Dates: start: 20121013, end: 20130415
  2. FLUOXETINE [Concomitant]
     Route: 065
  3. PROMETHAZINE [Concomitant]
     Indication: NAUSEA
     Route: 065
     Dates: start: 2012

REACTIONS (1)
  - Hypersensitivity [Recovered/Resolved]
